FAERS Safety Report 6211264-6 (Version None)
Quarter: 2009Q2

REPORT INFORMATION
  Report Type: 
  Country: None (occurrence: None)
  Receive Date: 20090602
  Receipt Date: 20090526
  Transmission Date: 20091009
  Serious: Yes (Other)
  Sender: FDA-Public Use
  Company Number: US-SOLVAY-00209002035

PATIENT
  Age: 593 Month
  Sex: Female
  Weight: 118.18 kg

DRUGS (6)
  1. ESTRATEST [Suspect]
     Indication: HOT FLUSH
     Dosage: DAILY DOSE:  1/2 TABLET EVERY OTHER DAY
     Route: 048
     Dates: start: 20090101
  2. ATENOLOL [Concomitant]
     Indication: BLOOD PRESSURE
     Dosage: DAILY DOSE: 50 MILLIGRAM(S)
     Route: 048
     Dates: start: 20010101
  3. LOTENSIN HCT [Concomitant]
     Indication: BLOOD PRESSURE
     Dosage: DAILY DOSE:  40/25MG, AS USED: 20/12.5MG, FREQUENCY: TWICE A DAY
     Route: 048
     Dates: start: 20010101
  4. LOVAZA [Concomitant]
     Indication: BLOOD CHOLESTEROL
     Dosage: DAILY DOSE: 1 GRAM(S)
     Route: 048
     Dates: start: 20070101
  5. VYTORIN [Concomitant]
     Indication: BLOOD CHOLESTEROL
     Dosage: DAILY DOSE:  10/40MG
     Route: 048
     Dates: start: 20040101
  6. PREVACID [Concomitant]
     Indication: GASTROOESOPHAGEAL REFLUX DISEASE
     Dosage: DAILY DOSE: 40 MILLIGRAM(S)
     Route: 048
     Dates: start: 20030101

REACTIONS (3)
  - COLOUR BLINDNESS [None]
  - OPTIC NERVE DISORDER [None]
  - SCOTOMA [None]
